FAERS Safety Report 16287066 (Version 2)
Quarter: 2019Q2

REPORT INFORMATION
  Report Type: Report from Study
  Country: FR (occurrence: FR)
  Receive Date: 20190508
  Receipt Date: 20190530
  Transmission Date: 20190711
  Serious: Yes (Hospitalization)
  Sender: FDA-Public Use
  Company Number: FR-ROCHE-2311182

PATIENT
  Age: 76 Year
  Sex: Male
  Weight: 93.2 kg

DRUGS (5)
  1. DOCETAXEL. [Suspect]
     Active Substance: DOCETAXEL
     Indication: HER-2 POSITIVE GASTRIC CANCER
     Dosage: RECENT DOSE OF DOCETAXEL IS ON 17/APR/2019: 110 MG
     Route: 065
     Dates: start: 20190306
  2. FLUOROURACIL. [Suspect]
     Active Substance: FLUOROURACIL
     Indication: HER-2 POSITIVE GASTRIC CANCER
     Dosage: RECENT DOSE OF  FLUOROURACIL: 17/APR/2019: 5800 MG
     Route: 042
     Dates: start: 20190306
  3. OXALIPLATIN. [Suspect]
     Active Substance: OXALIPLATIN
     Indication: HER-2 POSITIVE GASTRIC CANCER
     Dosage: RECENT DOSE OF  OXALIPLATIN: 17/APR/2019: 190 MG
     Route: 065
     Dates: start: 20190306
  4. TRASTUZUMAB. [Suspect]
     Active Substance: TRASTUZUMAB
     Indication: HER-2 POSITIVE GASTRIC CANCER
     Dosage: MOST RECENT DOSE OF TRASTUZUMAB WAS ON 17/APR/2019: 590 MG
     Route: 042
     Dates: start: 20190306
  5. LEUCOVORIN [FOLINIC ACID] [Suspect]
     Active Substance: LEUCOVORIN
     Indication: HER-2 POSITIVE GASTRIC CANCER
     Route: 065
     Dates: start: 20190306, end: 20190417

REACTIONS (2)
  - Decreased appetite [Recovered/Resolved]
  - Weight decreased [Recovered/Resolved]

NARRATIVE: CASE EVENT DATE: 20190429
